FAERS Safety Report 15559832 (Version 2)
Quarter: 2020Q3

REPORT INFORMATION
  Report Type: Report from Study
  Country: CA (occurrence: CA)
  Receive Date: 20181029
  Receipt Date: 20200910
  Transmission Date: 20201102
  Serious: Yes (Hospitalization, Other)
  Sender: FDA-Public Use
  Company Number: CA-BRISTOL-MYERS SQUIBB COMPANY-BMS-2018-097750

PATIENT
  Sex: Female

DRUGS (2)
  1. ABATACEPT [Suspect]
     Active Substance: ABATACEPT
     Indication: POLYMYALGIA RHEUMATICA
  2. ABATACEPT [Suspect]
     Active Substance: ABATACEPT
     Indication: GIANT CELL ARTERITIS
     Dosage: 750 MG, Q4WK
     Route: 042
     Dates: start: 20170602

REACTIONS (5)
  - Upper respiratory tract infection [Recovered/Resolved]
  - Fall [Unknown]
  - Wrist fracture [Unknown]
  - Intentional product use issue [Unknown]
  - Pulmonary mass [Recovered/Resolved]
